FAERS Safety Report 5888626-X (Version None)
Quarter: 2008Q3

REPORT INFORMATION
  Report Type: 
  Country: None (occurrence: None)
  Receive Date: 20080916
  Receipt Date: 20080902
  Transmission Date: 20090109
  Serious: Yes (Other)
  Sender: FDA-Public Use
  Company Number: 20081014

PATIENT
  Age: 65 Year
  Sex: Male

DRUGS (4)
  1. OMEPRAZOLE [Suspect]
     Dosage: 20 MG
  2. COLCHICINES [Concomitant]
  3. ACENOCOUMAROL [Concomitant]
  4. DICLOFENAC [Concomitant]

REACTIONS (1)
  - ERECTILE DYSFUNCTION [None]
